FAERS Safety Report 9449418 (Version 1)
Quarter: 2013Q3

REPORT INFORMATION
  Report Type: Spontaneous
  Country: DK (occurrence: DK)
  Receive Date: 20130809
  Receipt Date: 20130809
  Transmission Date: 20140515
  Serious: Yes (Other)
  Sender: FDA-Public Use
  Company Number: DK-009507513-1308DNK003369

PATIENT
  Age: 41 Year
  Sex: Female

DRUGS (9)
  1. MIRTAZAPINE [Suspect]
     Route: 065
  2. FLUCONAZOLE [Interacting]
     Indication: ORAL CANDIDIASIS
     Dosage: 100 MG X 1
     Route: 065
  3. DOXORUBICIN [Interacting]
     Route: 065
  4. DOXORUBICIN [Interacting]
     Dosage: DOSE REDUCED
     Route: 065
  5. ETOPOSIDE [Interacting]
     Dosage: 900 MG OVER 9 DAYS
     Route: 065
  6. ETOPOSIDE [Interacting]
     Dosage: DOSE REDUCED
     Route: 065
  7. IFOSFAMIDE [Interacting]
     Dosage: 6 G OVER 9 DAYS
     Route: 065
  8. VINCRISTINE SULFATE [Interacting]
     Dosage: SINGLE DOSE
     Route: 065
  9. PREDNISOLONE [Interacting]

REACTIONS (2)
  - Drug interaction [Unknown]
  - Neuropathy peripheral [Recovering/Resolving]
